FAERS Safety Report 24324579 (Version 1)
Quarter: 2024Q3

REPORT INFORMATION
  Report Type: Spontaneous
  Country: CN (occurrence: CN)
  Receive Date: 20240916
  Receipt Date: 20240916
  Transmission Date: 20241016
  Serious: Yes (Death, Life-Threatening, Hospitalization, Other)
  Sender: BAXTER
  Company Number: CN-BAXTER-2024BAX024381

PATIENT
  Age: 44 Year
  Sex: Male
  Weight: 57.5 kg

DRUGS (15)
  1. CYCLOPHOSPHAMIDE [Suspect]
     Active Substance: CYCLOPHOSPHAMIDE
     Indication: Lymphodepletion
     Dosage: 400 MG, ONCE DAILY
     Route: 041
     Dates: start: 20240814, end: 20240814
  2. FLUDARABINE [Suspect]
     Active Substance: FLUDARABINE PHOSPHATE
     Indication: Lymphodepletion
     Dosage: 40 MG, ONCE DAIY
     Route: 041
     Dates: start: 20240814, end: 20240814
  3. IRINOTECAN [Suspect]
     Active Substance: IRINOTECAN
     Indication: Gastric cancer
     Dosage: 240 MG (150MG/M2), ST, IMMEDIATE
     Route: 041
     Dates: start: 20240718, end: 20240718
  4. LEUCOVORIN CALCIUM [Suspect]
     Active Substance: LEUCOVORIN CALCIUM
     Indication: Gastric cancer
     Dosage: 600 MG, ST
     Route: 041
     Dates: start: 20240718, end: 20240718
  5. FLUOROURACIL [Suspect]
     Active Substance: FLUOROURACIL
     Indication: Gastric cancer
     Dosage: 3.8 G 9INTRAVENOUS PUSH MICRO PUMP)
     Route: 042
     Dates: start: 20240718, end: 20240718
  6. NADROPARIN CALCIUM [Concomitant]
     Active Substance: NADROPARIN CALCIUM
     Indication: Thrombosis prophylaxis
     Dosage: 4100 IU, ONGOING
     Route: 058
     Dates: start: 20240815
  7. METOCLOPRAMIDE HYDROCHLORIDE [Concomitant]
     Active Substance: METOCLOPRAMIDE HYDROCHLORIDE
     Indication: Vomiting
     Dosage: 10 MG
     Route: 030
     Dates: start: 20240814, end: 20240814
  8. AKYNZEO [Concomitant]
     Indication: Vomiting
     Dosage: 0.5 MG
     Route: 048
     Dates: start: 20240814, end: 20240814
  9. MORPHINE HYDROCHLORIDE [Concomitant]
     Active Substance: MORPHINE HYDROCHLORIDE
     Indication: Cancer pain
     Dosage: 10 MG, ONGOING
     Route: 058
     Dates: start: 20240815
  10. OXYCODONE AND ACETAMINOPHEN [Concomitant]
     Active Substance: ACETAMINOPHEN\OXYCODONE HYDROCHLORIDE
     Indication: Cancer pain
     Dosage: 1 TABLET, ONGOING
     Route: 048
     Dates: start: 20240813
  11. RIVAROXABAN [Concomitant]
     Active Substance: RIVAROXABAN
     Indication: Thrombosis prophylaxis
     Dosage: 10 MG
     Route: 048
     Dates: start: 20240719, end: 20240814
  12. LEUCOGEN [Concomitant]
     Active Substance: LEUCOGEN
     Indication: White blood cell count decreased
     Dosage: 60 MG
     Route: 048
     Dates: start: 20240807, end: 20240815
  13. LEUCOGEN [Concomitant]
     Active Substance: LEUCOGEN
     Indication: Platelet count decreased
  14. LEVAMLODIPINE [Concomitant]
     Active Substance: LEVAMLODIPINE
     Indication: Hypertension
     Dosage: 2.5 MG, THERAPY DATE: 2013 TO ONGOING
     Route: 048
  15. TELMISARTAN [Concomitant]
     Active Substance: TELMISARTAN
     Indication: Hypertension
     Dosage: 40 MG, THERAPY DATE: 2013 TO ONGOING
     Route: 048

REACTIONS (10)
  - Neoplasm progression [Fatal]
  - Shock [Not Recovered/Not Resolved]
  - Cold sweat [Unknown]
  - Sluggishness [Unknown]
  - Coma [Unknown]
  - Acidosis [Not Recovered/Not Resolved]
  - Pneumonia [Not Recovered/Not Resolved]
  - Fatigue [Unknown]
  - Hypoxia [Not Recovered/Not Resolved]
  - Vomiting [Unknown]

NARRATIVE: CASE EVENT DATE: 20240814
